FAERS Safety Report 5425943-1 (Version None)
Quarter: 2007Q3

REPORT INFORMATION
  Report Type: 
  Country: None (occurrence: None)
  Receive Date: 20070823
  Receipt Date: 20070823
  Transmission Date: 20080115
  Serious: Yes (Hospitalization)
  Sender: FDA-Public Use
  Company Number: None

PATIENT
  Sex: Female
  Weight: 77 kg

DRUGS (2)
  1. TAXOL [Suspect]
     Dosage: 325 MG
     Dates: end: 20070725
  2. CARBOPLATIN [Suspect]
     Dosage: 488 MG
     Dates: end: 20070725

REACTIONS (3)
  - ABDOMINAL DISCOMFORT [None]
  - ABDOMINAL DISTENSION [None]
  - PRESYNCOPE [None]
